FAERS Safety Report 11087498 (Version 2)
Quarter: 2015Q2

REPORT INFORMATION
  Report Type: Spontaneous
  Country: CO (occurrence: CO)
  Receive Date: 20150504
  Receipt Date: 20150513
  Transmission Date: 20150821
  Serious: Yes (Hospitalization, Other)
  Sender: FDA-Public Use
  Company Number: CO-PFIZER INC-2015150801

PATIENT
  Age: 55 Year
  Sex: Male

DRUGS (8)
  1. ATORVASTATIN [Concomitant]
     Active Substance: ATORVASTATIN
  2. RAPAMUNE [Suspect]
     Active Substance: SIROLIMUS
     Indication: PROPHYLAXIS AGAINST TRANSPLANT REJECTION
     Dosage: 1 MG, DAILY
     Dates: start: 201503
  3. LOSARTAN [Concomitant]
     Active Substance: LOSARTAN
  4. MORFIN /00036301/ [Concomitant]
  5. PREDNISOLON /00016201/ [Concomitant]
     Active Substance: PREDNISOLONE
  6. ACIDO FOLICO /00024201/ [Concomitant]
  7. RANITIDIN [Concomitant]
     Active Substance: RANITIDINE HYDROCHLORIDE
  8. TRAMADOL [Concomitant]
     Active Substance: TRAMADOL

REACTIONS (3)
  - Volvulus [Recovered/Resolved]
  - Spleen disorder [Recovered/Resolved]
  - Constipation [Recovered/Resolved]

NARRATIVE: CASE EVENT DATE: 201504
